FAERS Safety Report 12832392 (Version 2)
Quarter: 2016Q4

REPORT INFORMATION
  Report Type: Report from Study
  Country: IT (occurrence: IT)
  Receive Date: 20161010
  Receipt Date: 20161021
  Transmission Date: 20170207
  Serious: Yes (Hospitalization, Other)
  Sender: FDA-Public Use
  Company Number: IT-BRISTOL-MYERS SQUIBB COMPANY-BMS-2016-083171

PATIENT
  Age: 67 Year
  Sex: Male

DRUGS (1)
  1. NIVOLUMAB [Suspect]
     Active Substance: NIVOLUMAB
     Indication: NON-SMALL CELL LUNG CANCER
     Dosage: 3 MG/KG, UNK
     Route: 042

REACTIONS (7)
  - Hypertensive crisis [Recovered/Resolved]
  - Cough [Recovered/Resolved]
  - Pneumonitis [Recovered/Resolved]
  - Respiratory tract infection viral [Recovered/Resolved]
  - Fatigue [Recovered/Resolved]
  - Dyspnoea [Recovered/Resolved with Sequelae]
  - Weight increased [Recovered/Resolved]

NARRATIVE: CASE EVENT DATE: 20151125
